FAERS Safety Report 7771765-6 (Version None)
Quarter: 2011Q3

REPORT INFORMATION
  Report Type: 
  Country: None (occurrence: None)
  Receive Date: 20110922
  Receipt Date: 20110920
  Transmission Date: 20111222
  Serious: Yes (Other)
  Sender: FDA-Public Use
  Company Number: US-PFIZER INC-2011223640

PATIENT
  Sex: Female

DRUGS (3)
  1. ALPRAZOLAM [Suspect]
     Indication: FEELING OF RELAXATION
     Dosage: 1 MG, AS NEEDED
     Route: 060
     Dates: start: 20110916
  2. ALPRAZOLAM [Suspect]
     Indication: INSOMNIA
  3. ALPRAZOLAM [Suspect]
     Indication: ANXIETY

REACTIONS (5)
  - GLOSSODYNIA [None]
  - TONGUE EXFOLIATION [None]
  - DYSPHAGIA [None]
  - INCORRECT ROUTE OF DRUG ADMINISTRATION [None]
  - DYSPEPSIA [None]
